FAERS Safety Report 17768844 (Version 1)
Quarter: 2020Q2

REPORT INFORMATION
  Report Type: Spontaneous
  Country: GB (occurrence: GB)
  Receive Date: 20200512
  Receipt Date: 20200512
  Transmission Date: 20200714
  Serious: Yes (Hospitalization)
  Sender: FDA-Public Use
  Company Number: GB-AUROBINDO-AUR-APL-2020-024075

PATIENT
  Age: 36 Year
  Sex: Female

DRUGS (1)
  1. TOPIRAMATE FILM-COATED TABLET [Suspect]
     Active Substance: TOPIRAMATE
     Indication: PRODUCT USED FOR UNKNOWN INDICATION
     Dosage: 100 MILLIGRAM TOTAL
     Route: 048

REACTIONS (6)
  - Product dispensing error [Unknown]
  - Dysstasia [Unknown]
  - Feeling hot [Unknown]
  - Dyspnoea [Unknown]
  - Paraesthesia [Unknown]
  - Malaise [Unknown]
